FAERS Safety Report 8199400 (Version 4)
Quarter: 2013Q2

REPORT INFORMATION
  Report Type: Spontaneous
  Country: FR (occurrence: FR)
  Receive Date: 20111025
  Receipt Date: 20130606
  Transmission Date: 20140414
  Serious: Yes (Hospitalization, Other)
  Sender: FDA-Public Use
  Company Number: FR-ASTRAZENECA-2011SE62977

PATIENT
  Age: 61 Year
  Sex: Female

DRUGS (6)
  1. INEXIUM [Suspect]
     Route: 042
     Dates: start: 20110703, end: 20110808
  2. VANCOMYCINE [Suspect]
     Indication: ENDOCARDITIS
     Route: 042
     Dates: start: 20110703, end: 20110729
  3. TRIFLUCAN [Suspect]
     Dosage: 2 MG/ML
     Route: 042
     Dates: start: 20110718, end: 20110729
  4. CLAFORAN [Suspect]
     Indication: ENDOCARDITIS
     Route: 042
     Dates: start: 20110703, end: 20110729
  5. CIFLOX [Suspect]
     Dosage: 400 MG / 200 ML PER DOSE
     Route: 042
     Dates: start: 20110718, end: 20110729
  6. HEXABRIX [Suspect]
     Route: 042
     Dates: start: 20120713, end: 20120713

REACTIONS (2)
  - Drug reaction with eosinophilia and systemic symptoms [Recovered/Resolved]
  - Pericardial haemorrhage [Unknown]
